FAERS Safety Report 22391364 (Version 1)
Quarter: 2023Q2

REPORT INFORMATION
  Report Type: Spontaneous
  Country: US (occurrence: US)
  Receive Date: 20230601
  Receipt Date: 20230601
  Transmission Date: 20230722
  Serious: Yes (Other)
  Sender: FDA-Public Use
  Company Number: US-002147023-NVSC2023US122671

PATIENT
  Sex: Female

DRUGS (1)
  1. PROMACTA [Suspect]
     Active Substance: ELTROMBOPAG OLAMINE
     Indication: Haemorrhagic disorder
     Dosage: 50 MG, QD
     Route: 048
     Dates: start: 202304

REACTIONS (3)
  - Neoplasm malignant [Unknown]
  - Platelet disorder [Unknown]
  - Product use in unapproved indication [Unknown]
